FAERS Safety Report 17746687 (Version 3)
Quarter: 2021Q2

REPORT INFORMATION
  Report Type: Spontaneous
  Country: US (occurrence: US)
  Receive Date: 20200505
  Receipt Date: 20210420
  Transmission Date: 20210716
  Serious: No
  Sender: FDA-Public Use
  Company Number: US-PFIZER INC-2020179932

PATIENT
  Age: 58 Year
  Sex: Female

DRUGS (4)
  1. XELJANZ [Suspect]
     Active Substance: TOFACITINIB CITRATE
     Dosage: 5 MG 2X/DAY (TWICE DAILY)
     Route: 048
     Dates: start: 20210320
  2. COVID?19 VACCINE NOS. [Concomitant]
     Active Substance: COVID-19 VACCINE NOS
     Dosage: UNK
  3. XELJANZ [Suspect]
     Active Substance: TOFACITINIB CITRATE
     Indication: PSORIATIC ARTHROPATHY
     Dosage: 5 MG, 2X/DAY
     Route: 048
     Dates: start: 2018
  4. XELJANZ [Suspect]
     Active Substance: TOFACITINIB CITRATE
     Dosage: 5 MG, 2X/DAY(ONE TAB TWICE A DAY )
     Dates: start: 20200215

REACTIONS (4)
  - Intentional dose omission [Unknown]
  - Product dose omission in error [Unknown]
  - Blood cholesterol increased [Unknown]
  - Anxiety [Unknown]
